FAERS Safety Report 23359777 (Version 1)
Quarter: 2024Q1

REPORT INFORMATION
  Report Type: Other
  Country: PL (occurrence: PL)
  Receive Date: 20240103
  Receipt Date: 20240103
  Transmission Date: 20240410
  Serious: Yes (Hospitalization)
  Sender: FDA-Public Use
  Company Number: PL-PFIZER INC-PV202200005642

PATIENT
  Age: 71 Year
  Sex: Female

DRUGS (11)
  1. MYCOPHENOLATE MOFETIL [Suspect]
     Active Substance: MYCOPHENOLATE MOFETIL
     Indication: Dermatomyositis
     Dosage: 1 G, DAILY
     Route: 065
  2. CHLOROQUINE [Suspect]
     Active Substance: CHLOROQUINE
     Indication: Dermatomyositis
     Dosage: 250 MG, DAILY
     Route: 065
  3. TRIAMCINOLONE [Suspect]
     Active Substance: TRIAMCINOLONE
     Indication: Dermatomyositis
     Dosage: 4 MG, DAILY
     Route: 065
     Dates: start: 2020
  4. CYCLOSPORINE [Suspect]
     Active Substance: CYCLOSPORINE
     Indication: Dermatomyositis
     Dosage: 200 MG, DAILY
     Route: 065
     Dates: start: 2020
  5. PREDNISOLONE [Suspect]
     Active Substance: PREDNISOLONE
     Indication: Dermatomyositis
     Dosage: 60 MG, DAILY
     Route: 065
     Dates: start: 2016
  6. LEFLUNOMIDE [Suspect]
     Active Substance: LEFLUNOMIDE
     Indication: Dermatomyositis
     Dosage: 20 MG, DAILY
     Route: 065
  7. AZATHIOPRINE [Suspect]
     Active Substance: AZATHIOPRINE
     Indication: Dermatomyositis
     Dosage: 100 MG, DAILY
     Route: 065
     Dates: start: 2017
  8. PREDNISONE [Suspect]
     Active Substance: PREDNISONE
     Indication: Dermatomyositis
     Dosage: 10 MG, DAILY
     Route: 065
     Dates: start: 2020
  9. METHYLPREDNISOLONE SODIUM SUCCINATE [Suspect]
     Active Substance: METHYLPREDNISOLONE SODIUM SUCCINATE
     Indication: Dermatomyositis
     Dosage: 250 MG FOR 3 CONSECUTIVE DAYS
     Route: 065
     Dates: start: 2020
  10. FLUDROCORTISONE [Suspect]
     Active Substance: FLUDROCORTISONE
     Indication: Dermatomyositis
     Dosage: 100 UG, DAILY
     Route: 065
     Dates: start: 2020
  11. METHYLPREDNISOLONE [Suspect]
     Active Substance: METHYLPREDNISOLONE
     Indication: Dermatomyositis
     Dosage: 8 MG, DAILY
     Route: 065
     Dates: start: 2017

REACTIONS (13)
  - Osteoporosis [Unknown]
  - Varicose vein [Unknown]
  - Hypertension [Unknown]
  - Interstitial lung disease [Unknown]
  - Secondary adrenocortical insufficiency [Unknown]
  - Muscular weakness [Unknown]
  - Skin disorder [Unknown]
  - Petechiae [Unknown]
  - Muscle contracture [Unknown]
  - Erythema [Unknown]
  - Oedema peripheral [Unknown]
  - Skin exfoliation [Unknown]
  - Type V hyperlipidaemia [Unknown]
